FAERS Safety Report 4734333-6 (Version None)
Quarter: 2005Q3

REPORT INFORMATION
  Report Type: 
  Country: None (occurrence: None)
  Receive Date: 20050804
  Receipt Date: 20040623
  Transmission Date: 20060218
  Serious: No
  Sender: FDA-Public Use
  Company Number: CZ-BOEHRINGER INGELHEIM PHARMACEUTICALS, INC.-2004-DE-03472GD

PATIENT
  Sex: Female

DRUGS (3)
  1. PRAMIPEXOLE [Suspect]
     Indication: PARKINSONISM
  2. MANTIDAN [Suspect]
     Indication: PARKINSONISM
  3. LEVODOPA [Suspect]
     Indication: PARKINSONISM

REACTIONS (3)
  - CONDITION AGGRAVATED [None]
  - DRUG EFFECT DECREASED [None]
  - DYSKINESIA [None]
